FAERS Safety Report 13236698 (Version 2)
Quarter: 2017Q1

REPORT INFORMATION
  Report Type: Spontaneous
  Country: HU (occurrence: HU)
  Receive Date: 20170215
  Receipt Date: 20170221
  Transmission Date: 20170428
  Serious: Yes (Hospitalization, Other)
  Sender: FDA-Public Use
  Company Number: HU-PFIZER INC-2017019609

PATIENT
  Age: 67 Year
  Sex: Male

DRUGS (14)
  1. SYNCUMAR [Interacting]
     Active Substance: ACENOCOUMAROL
     Indication: ATRIAL FLUTTER
  2. LIPIDIL [Concomitant]
     Active Substance: FENOFIBRATE
     Indication: HYPERLIPIDAEMIA
     Dosage: 267 MG, 1X/DAY
     Route: 048
  3. XELEVIA [Concomitant]
     Active Substance: SITAGLIPTIN PHOSPHATE
     Indication: TYPE 2 DIABETES MELLITUS
     Dosage: 100 MG, 1X/DAY
     Route: 048
  4. SUTENT [Suspect]
     Active Substance: SUNITINIB MALATE
     Indication: RENAL NEOPLASM
     Dosage: 25 MG, ONCE DAILY
     Route: 048
     Dates: start: 20160530, end: 20170113
  5. MILURIT [Concomitant]
     Active Substance: ALLOPURINOL
     Indication: HYPERURICAEMIA
     Dosage: 300 MG, 1X/DAY
     Route: 048
  6. GLURENORM [Concomitant]
     Indication: TYPE 2 DIABETES MELLITUS
     Dosage: 15 MG, 1X/DAY
     Route: 048
  7. IRBESARTAN SANDOZ [Concomitant]
     Active Substance: IRBESARTAN
     Indication: ESSENTIAL HYPERTENSION
     Dosage: 300 MG, 1X/DAY
     Route: 048
  8. SYNCUMAR [Interacting]
     Active Substance: ACENOCOUMAROL
     Indication: ATRIAL FIBRILLATION
     Dosage: 1 MG, ONCE DAILY
     Route: 048
  9. DOXAZOSIN SANDOZ URO [Concomitant]
     Indication: ESSENTIAL HYPERTENSION
     Dosage: 4 MG, 2X/DAY
     Route: 048
  10. TENOX /00972403/ [Concomitant]
     Indication: ESSENTIAL HYPERTENSION
     Dosage: 5 MG, 2X/DAY
     Route: 048
  11. NEBILET [Concomitant]
     Active Substance: NEBIVOLOL
     Indication: ESSENTIAL HYPERTENSION
     Dosage: 5 MG, 1X/DAY
     Route: 048
  12. QUAMATEL [Concomitant]
     Active Substance: FAMOTIDINE
     Indication: PROPHYLAXIS AGAINST GASTROINTESTINAL ULCER
     Dosage: 40 MG, 1X/DAY
     Route: 048
  13. ZOCOR FORTE [Concomitant]
     Indication: HYPERLIPIDAEMIA
     Dosage: 40 MG, 1X/DAY
     Route: 048
  14. SUTENT [Interacting]
     Active Substance: SUNITINIB MALATE
     Indication: METASTASES TO LUNG
     Dosage: 12.5 MG, DAILY

REACTIONS (4)
  - Drug interaction [Recovered/Resolved]
  - Skin haemorrhage [Recovered/Resolved]
  - Anaemia [Recovering/Resolving]
  - Gingival bleeding [Recovered/Resolved]

NARRATIVE: CASE EVENT DATE: 201609
